FAERS Safety Report 14969640 (Version 1)
Quarter: 2018Q2

REPORT INFORMATION
  Report Type: Spontaneous
  Country: US (occurrence: US)
  Receive Date: 20180604
  Receipt Date: 20180604
  Transmission Date: 20180711
  Serious: No
  Sender: FDA-Public Use
  Company Number: US-OTSUKA-2018_000199

PATIENT
  Age: 90 Year
  Sex: Female

DRUGS (1)
  1. SAMSCA [Suspect]
     Active Substance: TOLVAPTAN
     Indication: PRODUCT USED FOR UNKNOWN INDICATION
     Dosage: 1 DF,EVERY THREE DAYS
     Route: 048
     Dates: start: 201312

REACTIONS (2)
  - Inappropriate schedule of drug administration [Unknown]
  - Disorientation [Unknown]

NARRATIVE: CASE EVENT DATE: 201312
